FAERS Safety Report 7750915-1 (Version None)
Quarter: 2011Q3

REPORT INFORMATION
  Report Type: 
  Country: None (occurrence: None)
  Receive Date: 20110825
  Receipt Date: 20110509
  Transmission Date: 20111222
  Serious: No
  Sender: FDA-Public Use
  Company Number: 328243

PATIENT
  Age: 37 Year
  Sex: Female

DRUGS (3)
  1. GLIPIZIDE [Concomitant]
  2. VICTOZA [Suspect]
     Indication: TYPE 2 DIABETES MELLITUS
     Dosage: 1.2 MG, QD, SUBCUTANEOUS
     Route: 058
     Dates: start: 20110317
  3. METFORMIN HCL [Concomitant]

REACTIONS (4)
  - WEIGHT DECREASED [None]
  - DECREASED APPETITE [None]
  - NAUSEA [None]
  - BLOOD PRESSURE DECREASED [None]
